FAERS Safety Report 18284160 (Version 1)
Quarter: 2020Q3

REPORT INFORMATION
  Report Type: Report from Study
  Country: FR (occurrence: FR)
  Receive Date: 20200918
  Receipt Date: 20200918
  Transmission Date: 20201103
  Serious: Yes (Other)
  Sender: FDA-Public Use
  Company Number: FR-JNJFOC-20200914335

PATIENT
  Age: 31 Year
  Sex: Male
  Weight: 81 kg

DRUGS (17)
  1. CLARELUX [Concomitant]
     Active Substance: CLOBETASOL PROPIONATE
     Dates: start: 20161013, end: 20191231
  2. RIFINAH [Concomitant]
     Active Substance: ISONIAZID\RIFAMPIN
     Dates: start: 20161014, end: 20161020
  3. DOLIPRANE [Concomitant]
     Active Substance: ACETAMINOPHEN
     Dates: start: 20161018, end: 20200106
  4. ABILIFY [Concomitant]
     Active Substance: ARIPIPRAZOLE
     Dates: start: 20160728, end: 20191231
  5. LEPTICUR [Concomitant]
     Active Substance: TROPATEPINE HYDROCHLORIDE
     Dates: start: 20160728, end: 20191231
  6. DAIVOBET [Concomitant]
     Active Substance: BETAMETHASONE DIPROPIONATE\CALCIPOTRIENE
     Dates: start: 20150513, end: 20191231
  7. DIPROLENE [Concomitant]
     Active Substance: BETAMETHASONE DIPROPIONATE
     Dates: start: 20161216, end: 20191231
  8. AUGMENTIN [Concomitant]
     Active Substance: AMOXICILLIN\CLAVULANATE POTASSIUM
     Dates: start: 20191231, end: 20200106
  9. STELARA [Suspect]
     Active Substance: USTEKINUMAB
     Route: 058
     Dates: end: 20191231
  10. STELARA [Suspect]
     Active Substance: USTEKINUMAB
     Indication: PSORIASIS
     Route: 058
     Dates: start: 20160216, end: 20190830
  11. IBUPROFENE [Concomitant]
     Active Substance: IBUPROFEN
     Dates: start: 20161018, end: 20191231
  12. RIMIFON [Concomitant]
     Active Substance: ISONIAZID
     Dates: start: 20161020, end: 20191231
  13. DEXERYL                            /00557601/ [Concomitant]
     Active Substance: CHLORPHENIRAMINE MALEATE\DEXTROMETHORPHAN HYDROBROMIDE\GUAIFENESIN\PHENYLEPHRINE HYDROCHLORIDE
     Dates: start: 20161216, end: 20191231
  14. ACITRETINE [Concomitant]
     Active Substance: ACITRETIN
  15. XEROQUEL [Concomitant]
     Active Substance: QUETIAPINE FUMARATE
     Dates: start: 20160728, end: 20191231
  16. CLOBEX                             /00012002/ [Concomitant]
     Active Substance: CLOXACILLIN SODIUM
     Dates: start: 20150414, end: 20191231
  17. LARMABAK [Concomitant]
     Dates: start: 20150414, end: 20191231

REACTIONS (1)
  - COVID-19 [Recovered/Resolved]

NARRATIVE: CASE EVENT DATE: 202002
